FAERS Safety Report 5201109-5 (Version None)
Quarter: 2007Q1

REPORT INFORMATION
  Report Type: 
  Country: None (occurrence: None)
  Receive Date: 20070108
  Receipt Date: 20070103
  Transmission Date: 20070707
  Serious: Yes (Hospitalization)
  Sender: FDA-Public Use
  Company Number: BE-BRISTOL-MYERS SQUIBB COMPANY-13630371

PATIENT
  Age: 52 Year
  Sex: Female
  Weight: 60 kg

DRUGS (3)
  1. TAXOL [Suspect]
     Indication: ENDOMETRIAL CANCER
     Dates: start: 20060630, end: 20060630
  2. CISPLATIN [Suspect]
     Indication: ENDOMETRIAL CANCER
     Dates: start: 20060630, end: 20060630
  3. DOXORUBICIN HCL [Suspect]
     Indication: ENDOMETRIAL CANCER
     Dates: start: 20060630, end: 20060630

REACTIONS (1)
  - FEBRILE NEUTROPENIA [None]
